FAERS Safety Report 5307597-8 (Version None)
Quarter: 2007Q2

REPORT INFORMATION
  Report Type: 
  Country: None (occurrence: None)
  Receive Date: 20070425
  Receipt Date: 20070413
  Transmission Date: 20071010
  Serious: Yes (Hospitalization)
  Sender: FDA-Public Use
  Company Number: FR-PFIZER INC-2007030639

PATIENT
  Sex: Male

DRUGS (2)
  1. DALACINE [Suspect]
     Route: 048
     Dates: start: 20070105, end: 20070210
  2. SULFAMETHOXAZOLE W/TRIMETHOPRIM [Suspect]
     Dosage: TEXT:6 TABLETS
     Route: 048
     Dates: start: 20070105, end: 20070210

REACTIONS (4)
  - ANAEMIA [None]
  - NEUTROPENIA [None]
  - PANCYTOPENIA [None]
  - THROMBOCYTOPENIA [None]
